FAERS Safety Report 21643103 (Version 1)
Quarter: 2022Q4

REPORT INFORMATION
  Report Type: Spontaneous
  Country: CH (occurrence: CH)
  Receive Date: 20221125
  Receipt Date: 20221125
  Transmission Date: 20230112
  Serious: Yes (Hospitalization, Other)
  Sender: FDA-Public Use
  Company Number: CH-SM-2022-20971

PATIENT
  Age: 65 Year
  Sex: Male
  Weight: 65.4 kg

DRUGS (19)
  1. HALDOL [Suspect]
     Active Substance: HALOPERIDOL
     Indication: Product used for unknown indication
     Route: 065
     Dates: start: 20221018
  2. CLOZAPINE [Suspect]
     Active Substance: CLOZAPINE
     Indication: Product used for unknown indication
     Route: 048
     Dates: start: 20221018, end: 20221021
  3. CLOZAPINE [Suspect]
     Active Substance: CLOZAPINE
     Dosage: LEPONEX 100 MG 0-0- 1 HALF -0 BIS 0-0-2-0,UNTERBRUCH AB 11.10.202
     Route: 048
     Dates: end: 20221011
  4. ZYPREXA [Suspect]
     Active Substance: OLANZAPINE
     Indication: Product used for unknown indication
     Route: 048
     Dates: start: 20221018
  5. ASPIRIN [Concomitant]
     Active Substance: ASPIRIN
     Route: 048
  6. RAMIPRIL [Concomitant]
     Active Substance: RAMIPRIL
     Dosage: 0.5 SEPARATED DOSES
     Route: 048
  7. ATORVASTATIN [Concomitant]
     Active Substance: ATORVASTATIN
     Route: 048
  8. EZETIMIBE [Concomitant]
     Active Substance: EZETIMIBE
     Route: 048
  9. VITAMINS [Concomitant]
     Active Substance: VITAMINS
     Route: 048
  10. BARACLUDE [Concomitant]
     Active Substance: ENTECAVIR
     Route: 048
  11. PANTOPRAZOLE SODIUM [Concomitant]
     Active Substance: PANTOPRAZOLE SODIUM
     Route: 048
  12. LORAZEPAM [Concomitant]
     Active Substance: LORAZEPAM
     Route: 048
  13. LORAZEPAM [Concomitant]
     Active Substance: LORAZEPAM
     Dosage: AS NECESSARY
  14. HUMALOG [Concomitant]
     Active Substance: INSULIN LISPRO
     Route: 058
  15. MINOZINAN [LEVOMEPROMAZINE] [Concomitant]
     Route: 048
  16. MINOZINAN [LEVOMEPROMAZINE] [Concomitant]
     Dosage: AS NECESSARY
  17. ACETAMINOPHEN [Concomitant]
     Active Substance: ACETAMINOPHEN
     Route: 048
  18. ACETAMINOPHEN [Concomitant]
     Active Substance: ACETAMINOPHEN
     Dosage: AS NECESSARY
  19. BETA-ADALAT [Concomitant]
     Dosage: AS NECESSARY
     Route: 065

REACTIONS (1)
  - Myocarditis [Recovering/Resolving]

NARRATIVE: CASE EVENT DATE: 20221020
